FAERS Safety Report 14250787 (Version 15)
Quarter: 2020Q3

REPORT INFORMATION
  Report Type: Spontaneous
  Country: US (occurrence: US)
  Receive Date: 20171205
  Receipt Date: 20200910
  Transmission Date: 20201102
  Serious: Yes (Hospitalization, Other)
  Sender: FDA-Public Use
  Company Number: US-PFIZER INC-2017517877

PATIENT
  Age: 71 Year
  Sex: Female

DRUGS (2)
  1. IBRANCE [Suspect]
     Active Substance: PALBOCICLIB
     Dosage: 75 MG, DAILY
     Route: 048
  2. IBRANCE [Suspect]
     Active Substance: PALBOCICLIB
     Indication: BREAST CANCER FEMALE
     Dosage: 100 MG, UNK

REACTIONS (10)
  - Feeling abnormal [Unknown]
  - Fall [Unknown]
  - Myocardial infarction [Unknown]
  - Muscle spasms [Unknown]
  - Nasopharyngitis [Unknown]
  - Decubitus ulcer [Unknown]
  - Pain [Unknown]
  - Pneumonia [Recovered/Resolved]
  - Oropharyngeal pain [Unknown]
  - Musculoskeletal disorder [Unknown]

NARRATIVE: CASE EVENT DATE: 201804
